FAERS Safety Report 5647941-5 (Version None)
Quarter: 2008Q1

REPORT INFORMATION
  Report Type: 
  Country: None (occurrence: None)
  Receive Date: 20080229
  Receipt Date: 20080213
  Transmission Date: 20080703
  Serious: Yes (Other)
  Sender: FDA-Public Use
  Company Number: ISPH-2008-0034

PATIENT
  Age: 57 Year
  Sex: Male

DRUGS (6)
  1. AZASITE [Suspect]
     Indication: EYE INFECTION
     Dosage: OPTHALMIC
     Route: 047
     Dates: start: 20080207, end: 20080213
  2. AZASITE [Suspect]
     Indication: EYE INFLAMMATION
     Dosage: OPTHALMIC
     Route: 047
     Dates: start: 20080207, end: 20080213
  3. DEXAMETHASONE TAB [Concomitant]
  4. DOXYCYCLINE (DOXYCYCLINE HYDROCHLORIDE) [Concomitant]
  5. CYTOXAN [Concomitant]
  6. VIGAMOX [Concomitant]

REACTIONS (5)
  - CORNEAL DISORDER [None]
  - CORNEAL PERFORATION [None]
  - CORNEAL TRANSPLANT [None]
  - IMPAIRED HEALING [None]
  - ULCERATIVE KERATITIS [None]
